FAERS Safety Report 10310327 (Version 2)
Quarter: 2014Q3

REPORT INFORMATION
  Report Type: Spontaneous
  Country: DE (occurrence: DE)
  Receive Date: 20140717
  Receipt Date: 20140717
  Transmission Date: 20150326
  Serious: Yes (Other)
  Sender: FDA-Public Use
  Company Number: DE-AMGEN-DEUSP2014034527

PATIENT
  Sex: Female
  Weight: 62 kg

DRUGS (5)
  1. HALAVEN [Concomitant]
     Active Substance: ERIBULIN MESYLATE
     Indication: BREAST CANCER METASTATIC
     Dosage: 1.23 G/M2, Q3WK
     Route: 042
     Dates: start: 20130304, end: 20140304
  2. ABRAXANE [Concomitant]
     Active Substance: PACLITAXEL
  3. XGEVA [Suspect]
     Active Substance: DENOSUMAB
     Indication: METASTASES TO BONE
     Dosage: 120 MG, Q4WK
     Route: 058
     Dates: start: 20131212, end: 20140430
  4. XGEVA [Suspect]
     Active Substance: DENOSUMAB
     Indication: BREAST CANCER
  5. ZOMETA [Concomitant]
     Active Substance: ZOLEDRONIC ACID

REACTIONS (4)
  - Diarrhoea [Recovering/Resolving]
  - Loss of consciousness [Unknown]
  - Nausea [Recovering/Resolving]
  - Vomiting [Recovering/Resolving]

NARRATIVE: CASE EVENT DATE: 20140305
